FAERS Safety Report 9045570 (Version 1)
Quarter: 2013Q1

REPORT INFORMATION
  Report Type: Report from Study
  Country: US (occurrence: US)
  Receive Date: 20130131
  Receipt Date: 20130131
  Transmission Date: 20140127
  Serious: No
  Sender: FDA-Public Use
  Company Number: US-ABBOTT-12P-163-1011952-00

PATIENT
  Sex: Female
  Weight: 68.1 kg

DRUGS (17)
  1. HUMIRA [Suspect]
     Indication: RHEUMATOID ARTHRITIS
     Dates: start: 2011, end: 201211
  2. PREDNISONE [Concomitant]
     Indication: RHEUMATOID ARTHRITIS
  3. LYRICA [Concomitant]
     Indication: PAIN
  4. OMEPRAZOLE [Concomitant]
     Indication: GASTROOESOPHAGEAL REFLUX DISEASE
  5. TRILIPIX [Concomitant]
     Indication: BLOOD CHOLESTEROL INCREASED
  6. OPANA ER [Concomitant]
     Indication: PAIN
  7. PLAQUINELL [Concomitant]
     Indication: RHEUMATOID ARTHRITIS
     Dates: start: 201211
  8. SINGULAIR [Concomitant]
     Indication: ASTHMA
  9. ASPIRIN [Concomitant]
     Indication: CARDIOVASCULAR EVENT PROPHYLAXIS
  10. PAXIL [Concomitant]
     Indication: DEPRESSION
  11. ZETIA [Concomitant]
     Indication: BLOOD CHOLESTEROL INCREASED
  12. WHELCHOL [Concomitant]
     Indication: BLOOD CHOLESTEROL INCREASED
  13. CALCIUM [Concomitant]
     Indication: MINERAL SUPPLEMENTATION
  14. FISH OIL [Concomitant]
     Indication: VITAMIN SUPPLEMENTATION
  15. LORTAB [Concomitant]
     Indication: PAIN
  16. KLONOPIN [Concomitant]
     Indication: ANXIETY
  17. FENTYNL LOZENGES [Concomitant]
     Indication: PAIN

REACTIONS (2)
  - Asthma [Recovered/Resolved]
  - Tracheobronchitis [Not Recovered/Not Resolved]
